FAERS Safety Report 8020583-2 (Version None)
Quarter: 2012Q1

REPORT INFORMATION
  Report Type: 
  Country: None (occurrence: None)
  Receive Date: 20120103
  Receipt Date: 20111227
  Transmission Date: 20120608
  Serious: No
  Sender: FDA-Public Use
  Company Number: US-GILEAD-2011-0048204

PATIENT
  Sex: Male

DRUGS (8)
  1. COLCHICINE [Concomitant]
     Indication: GOUT
     Dosage: UNK
  2. ROSUVASTATIN [Concomitant]
     Indication: BLOOD CHOLESTEROL
     Dosage: UNK
  3. HYDROCODONE/ACETAMINOPHEN          /01554201/ [Concomitant]
     Indication: BACK PAIN
     Dosage: UNK
  4. EMTRICITABINE/RILPIVIRINE/TENOFOVIR DF [Suspect]
     Indication: HIV INFECTION
     Dosage: 1 DF, UNK
     Route: 048
     Dates: start: 20110412, end: 20110629
  5. CELECOXIB [Concomitant]
     Indication: BACK PAIN
     Dosage: UNK
  6. OLMESARTAN MEDOXOMIL [Concomitant]
     Indication: HYPERTENSION
  7. CARISOPRODOL [Concomitant]
     Indication: MUSCLE RELAXANT THERAPY
     Dosage: UNK
  8. ULORIC [Concomitant]
     Indication: GOUT
     Dosage: UNK

REACTIONS (1)
  - AMNESIA [None]
